FAERS Safety Report 13041862 (Version 1)
Quarter: 2016Q4

REPORT INFORMATION
  Report Type: Spontaneous
  Country: US (occurrence: US)
  Receive Date: 20161219
  Receipt Date: 20161219
  Transmission Date: 20170207
  Serious: No
  Sender: FDA-Public Use
  Company Number: US-ROCHE-1278137

PATIENT
  Sex: Female

DRUGS (4)
  1. ZELBORAF [Suspect]
     Active Substance: VEMURAFENIB
     Indication: METASTASES TO LUNG
     Dosage: 3 TABLETS IN MORNING AND 3 TABLETS AT NIGHT
     Route: 048
  2. DECADRON [Concomitant]
     Active Substance: DEXAMETHASONE
  3. COREG [Concomitant]
     Active Substance: CARVEDILOL
  4. PRILOSEC [Concomitant]
     Active Substance: OMEPRAZOLE MAGNESIUM

REACTIONS (3)
  - Rash [Recovered/Resolved]
  - Disease progression [Not Recovered/Not Resolved]
  - Thrombosis [Recovered/Resolved]
